FAERS Safety Report 7813280-7 (Version None)
Quarter: 2011Q4

REPORT INFORMATION
  Report Type: 
  Country: None (occurrence: None)
  Receive Date: 20111013
  Receipt Date: 20111004
  Transmission Date: 20120403
  Serious: Yes (Hospitalization)
  Sender: FDA-Public Use
  Company Number: IT-GILEAD-2011-0042715

PATIENT

DRUGS (5)
  1. REYATAZ [Suspect]
     Route: 048
     Dates: start: 20110614, end: 20110720
  2. TRUVADA [Suspect]
     Route: 048
     Dates: start: 20110614, end: 20110720
  3. REYATAZ [Suspect]
     Indication: HIV INFECTION
     Route: 048
     Dates: start: 20071221, end: 20110308
  4. TRUVADA [Suspect]
     Indication: HIV INFECTION
     Route: 048
     Dates: start: 20071221, end: 20110308
  5. NORVIR [Concomitant]
     Indication: HIV INFECTION
     Route: 048
     Dates: start: 20071221, end: 20110720

REACTIONS (4)
  - TWIN PREGNANCY [None]
  - MATERNAL EXPOSURE DURING PREGNANCY [None]
  - INTRA-UTERINE DEATH [None]
  - ABORTION SPONTANEOUS [None]
